FAERS Safety Report 24543678 (Version 1)
Quarter: 2024Q4

REPORT INFORMATION
  Report Type: Spontaneous
  Country: CN (occurrence: CN)
  Receive Date: 20241024
  Receipt Date: 20241024
  Transmission Date: 20250115
  Serious: Yes (Hospitalization, Other)
  Sender: ABBVIE
  Company Number: CN-ABBVIE-5968840

PATIENT
  Age: 68 Year
  Sex: Female
  Weight: 60 kg

DRUGS (8)
  1. VENETOCLAX [Suspect]
     Active Substance: VENETOCLAX
     Indication: Leukaemia
     Dosage: DOSE:100 MILLIGRAM
     Route: 048
     Dates: start: 20240916, end: 20240916
  2. VENETOCLAX [Suspect]
     Active Substance: VENETOCLAX
     Indication: Leukaemia
     Dosage: DOSE:200 MILLIGRAM
     Route: 048
     Dates: start: 20240917, end: 20240917
  3. VENETOCLAX [Suspect]
     Active Substance: VENETOCLAX
     Indication: Leukaemia
     Dosage: DOSE: 400 MILLIGRAM
     Route: 048
     Dates: start: 20240918
  4. WATER FOR INJECTION [Suspect]
     Active Substance: WATER
     Indication: Leukaemia
     Dosage: DOSE: 4 MILLILITER
     Route: 058
     Dates: start: 20240916, end: 20240922
  5. AZACITIDINE [Suspect]
     Active Substance: AZACITIDINE
     Indication: Leukaemia
     Dosage: DOSE:100 MILLIGRAM
     Route: 058
     Dates: start: 20240916, end: 20240922
  6. CYTARABINE [Suspect]
     Active Substance: CYTARABINE
     Indication: Leukaemia
     Dosage: DOSE:50 MILLIGRAM
     Route: 058
     Dates: start: 20240918, end: 20240922
  7. SORAFENIB [Suspect]
     Active Substance: SORAFENIB
     Indication: Product used for unknown indication
     Route: 048
  8. CYTARABINE [Suspect]
     Active Substance: CYTARABINE
     Indication: Product used for unknown indication
     Route: 048

REACTIONS (3)
  - Myelosuppression [Recovering/Resolving]
  - Myelosuppression [Unknown]
  - Granulocyte count decreased [Unknown]

NARRATIVE: CASE EVENT DATE: 20240101
